FAERS Safety Report 16207550 (Version 7)
Quarter: 2021Q2

REPORT INFORMATION
  Report Type: Spontaneous
  Country: US (occurrence: US)
  Receive Date: 20190417
  Receipt Date: 20210630
  Transmission Date: 20210716
  Serious: Yes (Other)
  Sender: FDA-Public Use
  Company Number: US-PFIZER INC-2019123263

PATIENT
  Age: 64 Year
  Sex: Female
  Weight: 57.15 kg

DRUGS (4)
  1. PREMARIN [Suspect]
     Active Substance: ESTROGENS, CONJUGATED
     Indication: CYSTITIS
     Dosage: 1 G, 2X/WEEK
     Route: 067
  2. PREMARIN [Suspect]
     Active Substance: ESTROGENS, CONJUGATED
     Indication: PROPHYLAXIS URINARY TRACT INFECTION
     Dosage: (2 TO 3 TIMES A WEEK INSERTED VAGINALLY/0.625MG (30 GRAM), PRESCRIBED TO USE 2 TO 3 TIMES/WEEK)
     Route: 067
  3. PREMARIN [Suspect]
     Active Substance: ESTROGENS, CONJUGATED
     Indication: VULVOVAGINAL DRYNESS
     Dosage: 1 G, 2X/WEEK (PREMARIN 0.625 MG/GRAM CREAM WITH APPLICATOR 1 GRAM PER VAGINA TWICE/WEEK)
     Route: 067
  4. PREGABALIN. [Concomitant]
     Active Substance: PREGABALIN

REACTIONS (9)
  - Expired product administered [Unknown]
  - Product use issue [Unknown]
  - Urinary tract infection [Recovering/Resolving]
  - Intentional product misuse [Unknown]
  - Off label use [Unknown]
  - Pyrexia [Unknown]
  - Drug effective for unapproved indication [Unknown]
  - Product physical consistency issue [Unknown]
  - Illness [Unknown]

NARRATIVE: CASE EVENT DATE: 20210501
